FAERS Safety Report 17085543 (Version 2)
Quarter: 2019Q4

REPORT INFORMATION
  Report Type: Report from Study
  Country: None (occurrence: US)
  Receive Date: 20191128
  Receipt Date: 20191206
  Transmission Date: 20200122
  Serious: Yes (Other)
  Sender: FDA-Public Use
  Company Number: US-ABBVIE-19K-163-3013712-00

PATIENT
  Age: 87 Year
  Sex: Male

DRUGS (6)
  1. FLOMAX [Concomitant]
     Active Substance: TAMSULOSIN HYDROCHLORIDE
     Indication: PRODUCT USED FOR UNKNOWN INDICATION
  2. DOXYCYCLINE MONOHYDRATE [Concomitant]
     Active Substance: DOXYCYCLINE
     Indication: PRODUCT USED FOR UNKNOWN INDICATION
  3. ACYCLOVIR. [Concomitant]
     Active Substance: ACYCLOVIR
     Indication: PRODUCT USED FOR UNKNOWN INDICATION
  4. FEROSUL [Concomitant]
     Active Substance: FERROUS SULFATE
     Indication: PRODUCT USED FOR UNKNOWN INDICATION
  5. RIFAMPIN. [Concomitant]
     Active Substance: RIFAMPIN
     Indication: PRODUCT USED FOR UNKNOWN INDICATION
  6. VENCLEXTA [Suspect]
     Active Substance: VENETOCLAX
     Indication: REFRACTORY ANAEMIA WITH AN EXCESS OF BLASTS
     Dosage: AS DIRECTED
     Route: 048
     Dates: start: 20191111

REACTIONS (10)
  - Middle insomnia [Unknown]
  - Nausea [Unknown]
  - Neoplasm malignant [Not Recovered/Not Resolved]
  - Nocturia [Unknown]
  - Asthenia [Recovering/Resolving]
  - Decreased appetite [Unknown]
  - Prostatic disorder [Unknown]
  - Fatigue [Unknown]
  - Red blood cell count abnormal [Unknown]
  - Constipation [Recovered/Resolved]

NARRATIVE: CASE EVENT DATE: 201911
